FAERS Safety Report 8625436 (Version 2)
Quarter: 2013Q3

REPORT INFORMATION
  Report Type: Report from Study
  Country: IT (occurrence: IT)
  Receive Date: 20120620
  Receipt Date: 20130923
  Transmission Date: 20140515
  Serious: Yes (Hospitalization)
  Sender: FDA-Public Use
  Company Number: PHHY2012IT051838

PATIENT
  Age: 72 Year
  Sex: Male

DRUGS (2)
  1. CERTICAN [Suspect]
     Indication: IMMUNOSUPPRESSANT DRUG THERAPY
     Dosage: 0.75 MG, BID
     Route: 048
     Dates: start: 20070830, end: 20100101
  2. DELTACORTENE [Concomitant]
     Indication: IMMUNOSUPPRESSANT DRUG THERAPY
     Dosage: 7.5 MG, DAILY

REACTIONS (6)
  - Cardiac failure [Recovering/Resolving]
  - Circulatory collapse [Recovering/Resolving]
  - Chronic allograft nephropathy [Recovering/Resolving]
  - Atrial fibrillation [Recovering/Resolving]
  - Bronchopneumonia [Recovering/Resolving]
  - Pleural effusion [Recovering/Resolving]
